FAERS Safety Report 8097335-0 (Version None)
Quarter: 2012Q1

REPORT INFORMATION
  Report Type: 
  Country: None (occurrence: None)
  Receive Date: 20120128
  Receipt Date: 20110716
  Transmission Date: 20120608
  Serious: No
  Sender: FDA-Public Use
  Company Number: US-ABBOTT-11P-163-0839552-00

PATIENT
  Age: 46 Year
  Sex: Female

DRUGS (14)
  1. HUMIRA [Suspect]
     Indication: CROHN'S DISEASE
     Dates: start: 20110426, end: 20110601
  2. HORMONE PATCH [Concomitant]
     Indication: HORMONE REPLACEMENT THERAPY
     Dosage: WEEKLY
  3. LEVOXYL [Concomitant]
     Indication: THYROID DISORDER
     Dosage: DAILY
  4. VITAMIN B6 [Concomitant]
     Indication: VITAMIN SUPPLEMENTATION
  5. VITAMIN D [Concomitant]
     Indication: VITAMIN SUPPLEMENTATION
     Dosage: WEEKLY
  6. LANSOPRAZOLE [Concomitant]
     Indication: DYSPEPSIA
     Dosage: DAILY
  7. FOLIC ACID [Concomitant]
     Indication: VITAMIN SUPPLEMENTATION
     Dosage: DAILY
  8. IMURAN [Concomitant]
     Indication: CROHN'S DISEASE
     Dosage: DAILY
  9. ALLERGY SHOT [Concomitant]
     Indication: HYPERSENSITIVITY
     Route: 050
  10. POTASSIUM [Concomitant]
     Indication: BLOOD POTASSIUM DECREASED
  11. KEPPRA [Concomitant]
     Indication: EPILEPSY
  12. MAXZIDE [Concomitant]
     Indication: OEDEMA
     Dosage: DAILY
  13. VITAMIN B-12 [Concomitant]
     Indication: VITAMIN SUPPLEMENTATION
     Route: 050
  14. LOVALOG [Concomitant]
     Indication: DIABETES MELLITUS
     Dosage: INSULIN PUMP

REACTIONS (3)
  - ARTHRITIS [None]
  - GAIT DISTURBANCE [None]
  - DRUG INEFFECTIVE [None]
